FAERS Safety Report 5848550-5 (Version None)
Quarter: 2008Q3

REPORT INFORMATION
  Report Type: 
  Country: None (occurrence: None)
  Receive Date: 20080814
  Receipt Date: 20080801
  Transmission Date: 20090109
  Serious: Yes (Hospitalization, Other)
  Sender: FDA-Public Use
  Company Number: 2007-00590

PATIENT
  Age: 54 Year
  Sex: Male
  Weight: 65 kg

DRUGS (3)
  1. VELCADE [Suspect]
     Indication: MULTIPLE MYELOMA
     Dosage: 1.30 MG/M2, INTRAVENOUS
     Route: 042
     Dates: start: 20061107, end: 20070122
  2. DEXAMETHASONE TAB [Suspect]
     Indication: MULTIPLE MYELOMA
     Dosage: 40.00 MG, ORAL
     Route: 048
     Dates: start: 20061107, end: 20070122
  3. MORPHINE [Suspect]
     Indication: MULTIPLE MYELOMA
     Dates: start: 20061001

REACTIONS (11)
  - BONE PAIN [None]
  - CHOLESTASIS [None]
  - DRUG TOXICITY [None]
  - FOCAL NODULAR HYPERPLASIA [None]
  - HEPATOSPLENOMEGALY [None]
  - HYPERSPLENISM [None]
  - PERITONEAL EFFUSION [None]
  - PORTAL HYPERTENSION [None]
  - PROTHROMBIN LEVEL DECREASED [None]
  - SERUM FERRITIN INCREASED [None]
  - THROMBOCYTOPENIA [None]
